FAERS Safety Report 14769043 (Version 1)
Quarter: 2018Q2

REPORT INFORMATION
  Report Type: Spontaneous
  Country: GB (occurrence: GB)
  Receive Date: 20180417
  Receipt Date: 20180417
  Transmission Date: 20180711
  Serious: Yes (Other)
  Sender: FDA-Public Use
  Company Number: GB-B. BRAUN MEDICAL INC.-2045864

PATIENT
  Age: 1 Week
  Sex: Female
  Weight: 3.17 kg

DRUGS (2)
  1. CEFALEXIN [Suspect]
     Active Substance: CEPHALEXIN
     Route: 063
     Dates: start: 20170820, end: 20170829
  2. METRONIDAZOLE INJECTION USP (5 MG/ML) IN PAB? PLASTIC CONTAINER [Suspect]
     Active Substance: METRONIDAZOLE
     Indication: INFECTION PROPHYLAXIS
     Route: 063
     Dates: start: 20170820, end: 20170829

REACTIONS (5)
  - Oral candidiasis [Unknown]
  - Exposure via breast milk [None]
  - Lactose intolerance [Unknown]
  - Haematochezia [Unknown]
  - Abdominal pain [Unknown]
